FAERS Safety Report 10732509 (Version 2)
Quarter: 2015Q1

REPORT INFORMATION
  Report Type: Spontaneous
  Country: CH (occurrence: CH)
  Receive Date: 20150123
  Receipt Date: 20150126
  Transmission Date: 20150721
  Serious: Yes (Hospitalization, Other)
  Sender: FDA-Public Use
  Company Number: CH-ABBVIE-14K-151-1303294-00

PATIENT
  Age: 24 Year
  Sex: Male
  Weight: 81 kg

DRUGS (2)
  1. RIMSTAR [Suspect]
     Active Substance: ETHAMBUTOL\ISONIAZID\PYRAZINAMIDE\RIFAMYCIN
     Indication: TUBERCULOSIS
     Route: 048
     Dates: start: 20140913
  2. HUMIRA [Suspect]
     Active Substance: ADALIMUMAB
     Indication: CROHN^S DISEASE
     Route: 058
     Dates: start: 201311, end: 20140903

REACTIONS (11)
  - Transaminases increased [Recovered/Resolved]
  - Pneumonia [Unknown]
  - White blood cell count decreased [Unknown]
  - Influenza like illness [Unknown]
  - C-reactive protein increased [Unknown]
  - Blood uric acid increased [Unknown]
  - Pulmonary tuberculosis [Recovering/Resolving]
  - Blood thyroid stimulating hormone increased [Unknown]
  - Oropharyngeal pain [Unknown]
  - Blood 1,25-dihydroxycholecalciferol decreased [Unknown]
  - Laryngeal oedema [Unknown]

NARRATIVE: CASE EVENT DATE: 20131211
